FAERS Safety Report 9879710 (Version 2)
Quarter: 2014Q1

REPORT INFORMATION
  Report Type: Spontaneous
  Country: US (occurrence: US)
  Receive Date: 20140206
  Receipt Date: 20140312
  Transmission Date: 20141002
  Serious: No
  Sender: FDA-Public Use
  Company Number: US-009507513-1401USA014773

PATIENT
  Age: 60 Year
  Sex: Female

DRUGS (6)
  1. TEMODAR [Suspect]
     Indication: CHEMOTHERAPY
     Route: 048
  2. TEMODAR [Suspect]
     Indication: GLIOBLASTOMA MULTIFORME
  3. ACCUTANE [Suspect]
     Indication: CHEMOTHERAPY
  4. ACCUTANE [Suspect]
     Indication: GLIOBLASTOMA MULTIFORME
  5. PAZOPANIB HYDROCHLORIDE [Concomitant]
  6. LAPATINIB DITOSYLATE [Concomitant]

REACTIONS (1)
  - Drug ineffective [Unknown]
